FAERS Safety Report 9399244 (Version 1)
Quarter: 2013Q3

REPORT INFORMATION
  Report Type: Spontaneous
  Country: TR (occurrence: TR)
  Receive Date: 20130709
  Receipt Date: 20130709
  Transmission Date: 20140515
  Serious: Yes (Other)
  Sender: FDA-Public Use
  Company Number: 2013AP006391

PATIENT
  Age: 22 Year
  Sex: Male

DRUGS (6)
  1. LEFLUNOMIDE [Suspect]
     Indication: JUVENILE IDIOPATHIC ARTHRITIS
  2. METHOTREXATE (METHOTREXATE) [Suspect]
     Indication: JUVENILE IDIOPATHIC ARTHRITIS
  3. DEFLAZACORT [Suspect]
     Indication: JUVENILE IDIOPATHIC ARTHRITIS
     Dosage: 30 MG 1 X 1 FOR TWO WEEKS.
  4. ADALIMUMAB [Suspect]
     Indication: JUVENILE IDIOPATHIC ARTHRITIS
     Route: 058
  5. METHOTREXATE (METHOTREXATE) [Concomitant]
  6. SULFASALAZINE (SULFASALAZINE) [Concomitant]

REACTIONS (3)
  - Hepatitis B [None]
  - Hepatitis B DNA increased [None]
  - Alanine aminotransferase increased [None]
